FAERS Safety Report 6473811-9 (Version None)
Quarter: 2009Q4

REPORT INFORMATION
  Report Type: 
  Country: None (occurrence: None)
  Receive Date: 20091204
  Receipt Date: 20090811
  Transmission Date: 20100525
  Serious: No
  Sender: FDA-Public Use
  Company Number: US-BAYER-200930205NA

PATIENT
  Sex: Female
  Weight: 58 kg

DRUGS (10)
  1. ULTRAVIST 300 [Suspect]
     Indication: COMPUTERISED TOMOGRAM ABDOMEN
     Dosage: TOTAL DAILY DOSE: 86 ML  UNIT DOSE: 200 ML
     Route: 042
     Dates: start: 20090811, end: 20090811
  2. ATENOLOL [Concomitant]
  3. CYMBALTA [Concomitant]
  4. ULTRAM [Concomitant]
  5. CELEBREX [Concomitant]
  6. ACIPHEX [Concomitant]
  7. ACTONEL [Concomitant]
  8. IMURAN [Concomitant]
  9. VOLUMEN [Concomitant]
     Route: 048
     Dates: start: 20090811, end: 20090811
  10. ^AMITEZ^ [Concomitant]

REACTIONS (2)
  - DIZZINESS [None]
  - DYSPHAGIA [None]
